FAERS Safety Report 19010297 (Version 1)
Quarter: 2021Q1

REPORT INFORMATION
  Report Type: Spontaneous
  Country: KR (occurrence: KR)
  Receive Date: 20210315
  Receipt Date: 20210315
  Transmission Date: 20210420
  Serious: Yes (Hospitalization)
  Sender: FDA-Public Use
  Company Number: KR-FRESENIUS KABI-FK202102444

PATIENT
  Age: 36 Year
  Sex: Female

DRUGS (3)
  1. ERTAPENEM. [Concomitant]
     Active Substance: ERTAPENEM SODIUM
     Indication: INFECTION
     Route: 065
  2. DEXAMETHASONE INJECTION (MANUFACTURER UNKNOWN) [Suspect]
     Active Substance: DEXAMETHASONE
     Indication: DERMATITIS CONTACT
     Route: 041
  3. VANCOMYCIN [Concomitant]
     Active Substance: VANCOMYCIN
     Indication: INFECTION
     Route: 065

REACTIONS (3)
  - Abdominal abscess [Recovered/Resolved]
  - Enterococcal infection [Recovered/Resolved]
  - Uterine fistula [Recovered/Resolved]
